FAERS Safety Report 4335436-0 (Version None)
Quarter: 2004Q2

REPORT INFORMATION
  Report Type: 
  Country: None (occurrence: None)
  Receive Date: 20040409
  Receipt Date: 20040330
  Transmission Date: 20050107
  Serious: Yes (Other)
  Sender: FDA-Public Use
  Company Number: JP-BRISTOL-MYERS SQUIBB COMPANY-12554432

PATIENT
  Age: 15 Year
  Sex: Female

DRUGS (3)
  1. CYCLOPHOSPHAMIDE [Suspect]
     Indication: LEUKAEMIA
  2. CYTARABINE [Suspect]
     Indication: LEUKAEMIA
  3. RADIOTHERAPY [Suspect]
     Indication: LEUKAEMIA
     Dosage: 12 GY

REACTIONS (8)
  - ALANINE AMINOTRANSFERASE INCREASED [None]
  - ASPARTATE AMINOTRANSFERASE INCREASED [None]
  - CYSTITIS HAEMORRHAGIC [None]
  - HEPATIC ENZYME INCREASED [None]
  - OSTEONECROSIS [None]
  - OSTEOPOROSIS [None]
  - OVARIAN FAILURE [None]
  - VOMITING [None]
